FAERS Safety Report 6640551-2 (Version None)
Quarter: 2010Q1

REPORT INFORMATION
  Report Type: 
  Country: None (occurrence: None)
  Receive Date: 20100318
  Receipt Date: 20100312
  Transmission Date: 20100710
  Serious: Yes (Other)
  Sender: FDA-Public Use
  Company Number: AU-PFIZER INC-2010031843

PATIENT
  Age: 65 Year
  Sex: Male

DRUGS (1)
  1. DIFLUCAN [Suspect]
     Indication: MENINGITIS CRYPTOCOCCAL
     Dosage: UNK

REACTIONS (1)
  - CONGESTIVE CARDIOMYOPATHY [None]
